FAERS Safety Report 9799823 (Version 2)
Quarter: 2014Q1

REPORT INFORMATION
  Report Type: Spontaneous
  Country: US (occurrence: US)
  Receive Date: 20140106
  Receipt Date: 20140106
  Transmission Date: 20141002
  Serious: No
  Sender: FDA-Public Use
  Company Number: US-GILEAD-2010-0032675

PATIENT
  Age: 86 Year
  Sex: Female
  Weight: 59.87 kg

DRUGS (22)
  1. ALBUTEROL [Concomitant]
  2. LORAZEPAM [Concomitant]
  3. SINGULAIR [Concomitant]
  4. PULMICORT [Concomitant]
  5. PREDNISONE [Concomitant]
  6. SERTRALINE [Concomitant]
  7. COLACE [Concomitant]
  8. OXYCODONE [Concomitant]
  9. ZYPREXA [Concomitant]
  10. OMEPRAZOLE [Concomitant]
  11. ARICEPT [Concomitant]
  12. MUCINEX [Concomitant]
  13. PROCRIT [Concomitant]
  14. FIBER [Concomitant]
  15. MULTIVITAMIN [Concomitant]
  16. CALCIUM WITH VITAMIN D [Concomitant]
  17. LETAIRIS [Suspect]
     Indication: PULMONARY HYPERTENSION
     Route: 048
     Dates: start: 20100910, end: 20101015
  18. LETAIRIS [Suspect]
     Indication: CHRONIC OBSTRUCTIVE PULMONARY DISEASE
  19. PLAVIX [Concomitant]
  20. FUROSEMIDE [Concomitant]
  21. AMLODIPINE [Concomitant]
  22. DOXAZOSIN MESYLATE [Concomitant]

REACTIONS (1)
  - Asthenia [Unknown]
